FAERS Safety Report 6384403-4 (Version None)
Quarter: 2009Q4

REPORT INFORMATION
  Report Type: 
  Country: None (occurrence: None)
  Receive Date: 20091001
  Receipt Date: 20090921
  Transmission Date: 20100525
  Serious: Yes (Hospitalization, Other)
  Sender: FDA-Public Use
  Company Number: DE-ABBOTT-09P-062-0584865-00

PATIENT
  Sex: Female
  Weight: 57 kg

DRUGS (4)
  1. HUMIRA [Suspect]
     Indication: CROHN'S DISEASE
     Route: 058
     Dates: start: 20080305
  2. METRONIDAZOLE [Concomitant]
     Indication: ABDOMINAL PAIN
     Dates: start: 20090311, end: 20090419
  3. METRONIDAZOLE [Concomitant]
     Indication: SUPERINFECTION
  4. SALOFALK [Concomitant]
     Indication: CROHN'S DISEASE
     Dates: start: 20090409

REACTIONS (1)
  - CROHN'S DISEASE [None]
